FAERS Safety Report 7079325-X (Version None)
Quarter: 2010Q4

REPORT INFORMATION
  Report Type: 
  Country: None (occurrence: None)
  Receive Date: 20101102
  Receipt Date: 20100309
  Transmission Date: 20110411
  Serious: No
  Sender: FDA-Public Use
  Company Number: A0851015A

PATIENT

DRUGS (1)
  1. RYTHMOL SR [Suspect]
     Route: 065

REACTIONS (1)
  - SINUS DISORDER [None]
